FAERS Safety Report 17053458 (Version 1)
Quarter: 2019Q4

REPORT INFORMATION
  Report Type: Spontaneous
  Country: US (occurrence: US)
  Receive Date: 20191022
  Receipt Date: 20191022
  Transmission Date: 20200122
  Serious: Yes (Life-Threatening)
  Sender: FDA-Public Use
  Company Number: None

PATIENT
  Age: 35 Year
  Sex: Male
  Weight: 88.45 kg

DRUGS (1)
  1. TIANEPTINE SODIUM 20G [Suspect]
     Active Substance: TIANEPTINE SODIUM
     Dates: start: 20190509, end: 20191016

REACTIONS (2)
  - Withdrawal syndrome [None]
  - Heart rate irregular [None]

NARRATIVE: CASE EVENT DATE: 20191016
